FAERS Safety Report 12349425 (Version 1)
Quarter: 2016Q2

REPORT INFORMATION
  Report Type: Spontaneous
  Country: US (occurrence: US)
  Receive Date: 20160510
  Receipt Date: 20160510
  Transmission Date: 20160815
  Serious: Yes (Other)
  Sender: FDA-Public Use
  Company Number: US-AMGEN-USASP2016056613

PATIENT
  Age: 72 Year
  Sex: Female

DRUGS (1)
  1. PROLIA [Suspect]
     Active Substance: DENOSUMAB
     Indication: OSTEOARTHRITIS
     Dosage: UNK
     Route: 065
     Dates: start: 20160104

REACTIONS (6)
  - Gingivitis [Recovered/Resolved]
  - Localised infection [Unknown]
  - Arthropathy [Unknown]
  - Tooth disorder [Unknown]
  - Off label use [Unknown]
  - Ear infection [Unknown]
